FAERS Safety Report 8485454-6 (Version None)
Quarter: 2012Q3

REPORT INFORMATION
  Report Type: 
  Country: None (occurrence: None)
  Receive Date: 20120703
  Receipt Date: 20120628
  Transmission Date: 20120928
  Serious: Yes (Other)
  Sender: FDA-Public Use
  Company Number: AR-ROCHE-1083263

PATIENT
  Sex: Female

DRUGS (1)
  1. LUCENTIS [Suspect]
     Indication: MACULOPATHY
     Dosage: 2 AMPULES
     Route: 050
     Dates: start: 20120301

REACTIONS (2)
  - CORNEAL DISORDER [None]
  - BRONCHITIS [None]
